FAERS Safety Report 13746366 (Version 2)
Quarter: 2017Q3

REPORT INFORMATION
  Report Type: Spontaneous
  Country: JP (occurrence: JP)
  Receive Date: 20170712
  Receipt Date: 20170720
  Transmission Date: 20171127
  Serious: Yes (Hospitalization)
  Sender: FDA-Public Use
  Company Number: JP-HTU-2017JP013226

PATIENT
  Age: 64 Year
  Sex: Male
  Weight: 57 kg

DRUGS (16)
  1. CISPLATIN. [Concomitant]
     Active Substance: CISPLATIN
     Indication: NON-SMALL CELL LUNG CANCER
     Dosage: 122 MG, QD
     Route: 041
     Dates: start: 20170609, end: 20170609
  2. LANSOPRAZOLE. [Concomitant]
     Active Substance: LANSOPRAZOLE
     Indication: GASTROOESOPHAGEAL REFLUX DISEASE
     Dosage: 15 MG, QD
     Route: 048
  3. HIRUDOID [Concomitant]
     Active Substance: GLYCOSAMINOGLYCANS
     Indication: RASH
     Dosage: UNK
     Route: 061
  4. DEXART [Suspect]
     Active Substance: DEXAMETHASONE SODIUM PHOSPHATE
     Indication: PROPHYLAXIS OF NAUSEA AND VOMITING
     Dosage: 9.9 MG OR 13.2 MG, QD
     Route: 041
     Dates: start: 20170609, end: 20170609
  5. AVASTIN [Suspect]
     Active Substance: BEVACIZUMAB
     Indication: NON-SMALL CELL LUNG CANCER
     Dosage: 864 MG, QD
     Route: 041
     Dates: start: 20170609, end: 20170609
  6. CILNIDIPINE [Concomitant]
     Active Substance: CILNIDIPINE
     Indication: HYPERTENSION
     Dosage: 10 MG, QD
     Route: 048
  7. ALOXI [Suspect]
     Active Substance: PALONOSETRON HYDROCHLORIDE
     Indication: PROPHYLAXIS OF NAUSEA AND VOMITING
     Dosage: 0.75 MG, QD
     Route: 041
     Dates: start: 20170609, end: 20170609
  8. ALIMTA [Concomitant]
     Active Substance: PEMETREXED DISODIUM
     Indication: NON-SMALL CELL LUNG CANCER
     Dosage: 817 MG, QD
     Route: 041
     Dates: start: 20170609, end: 20170609
  9. PANVITAN [Concomitant]
     Indication: PROPHYLAXIS
     Dosage: 1 G, QD
     Route: 048
  10. DEXART [Suspect]
     Active Substance: DEXAMETHASONE SODIUM PHOSPHATE
     Dosage: 6.6 MG, QD
     Route: 041
     Dates: start: 20170610, end: 20170612
  11. PITAVASTATIN CALCIUM [Concomitant]
     Active Substance: PITAVASTATIN CALCIUM
     Indication: DYSLIPIDAEMIA
     Dosage: 2 MG, QD
     Route: 048
  12. NERISONA [Concomitant]
     Active Substance: DIFLUCORTOLONE VALERATE
     Indication: RASH
     Route: 061
  13. CANDESARTAN CILEXETIL. [Concomitant]
     Active Substance: CANDESARTAN CILEXETIL
     Indication: HYPERTENSION
     Dosage: 4 MG, QD
     Route: 048
  14. LOXOPROFEN [Concomitant]
     Active Substance: LOXOPROFEN
     Indication: PAIN
     Dosage: 180 MG, QD
     Route: 048
     Dates: start: 20170623, end: 20170629
  15. DALACIN T [Concomitant]
     Active Substance: CLINDAMYCIN PHOSPHATE
     Indication: RASH
     Dosage: UNK
     Route: 061
  16. RINDERON A [Concomitant]
     Active Substance: BETAMETHASONE SODIUM PHOSPHATE\NEOMYCIN SULFATE
     Indication: RASH
     Route: 061

REACTIONS (1)
  - Embolism [Recovering/Resolving]

NARRATIVE: CASE EVENT DATE: 20170629
